FAERS Safety Report 11058963 (Version 1)
Quarter: 2015Q2

REPORT INFORMATION
  Report Type: Spontaneous
  Country: US (occurrence: None)
  Receive Date: 20150420
  Receipt Date: 20150420
  Transmission Date: 20150821
  Serious: No
  Sender: FDA-Public Use
  Company Number: AEGR001134

PATIENT
  Age: 41 Year
  Sex: Female
  Weight: 93.4 kg

DRUGS (8)
  1. IBUPROFEN. [Concomitant]
     Active Substance: IBUPROFEN
  2. ZYRTEC [Concomitant]
     Active Substance: CETIRIZINE HYDROCHLORIDE
  3. ACETAZOLAMIDE. [Concomitant]
     Active Substance: ACETAZOLAMIDE
  4. JUXTAPID [Suspect]
     Active Substance: LOMITAPIDE MESYLATE
     Indication: TYPE IIA HYPERLIPIDAEMIA
     Route: 048
     Dates: start: 20150101
  5. MUCINEX (GUAIFENESIN) [Concomitant]
  6. PRILOSEC (OMEPRAZOLE) [Concomitant]
     Active Substance: OMEPRAZOLE MAGNESIUM
  7. CRESTOR (ROSTUVASTATIN CALCIUM) [Concomitant]
  8. GAVISCON (ALUMINIUM HYDROXIDE, MAGNESIUM CARBONATE) [Concomitant]

REACTIONS (7)
  - High density lipoprotein decreased [None]
  - Fatigue [None]
  - Arthralgia [None]
  - Headache [None]
  - Blood pressure increased [None]
  - Back pain [None]
  - Somnolence [None]

NARRATIVE: CASE EVENT DATE: 201409
